FAERS Safety Report 17638469 (Version 2)
Quarter: 2020Q2

REPORT INFORMATION
  Report Type: Report from Study
  Country: FR (occurrence: FR)
  Receive Date: 20200407
  Receipt Date: 20200410
  Transmission Date: 20200713
  Serious: Yes (Death, Other)
  Sender: FDA-Public Use
  Company Number: FR-EMD SERONO-9155682

PATIENT
  Age: 63 Year
  Sex: Male
  Weight: 84 kg

DRUGS (5)
  1. NORADRENALINE                      /00127501/ [Concomitant]
     Active Substance: NOREPINEPHRINE
     Indication: SEDATION
     Route: 042
     Dates: start: 20200326
  2. SPIRAMYCIN [Concomitant]
     Active Substance: SPIRAMYCIN
     Indication: PROPHYLAXIS
     Dosage: 9 MV
     Route: 042
     Dates: start: 20200324, end: 20200325
  3. REBIF [Suspect]
     Active Substance: INTERFERON BETA-1A
     Indication: CORONAVIRUS INFECTION
     Route: 058
     Dates: start: 20200325, end: 20200330
  4. KALETRA [Suspect]
     Active Substance: LOPINAVIR\RITONAVIR
     Indication: PRODUCT USED FOR UNKNOWN INDICATION
     Dates: start: 20200325
  5. CEFOTAXIME [Concomitant]
     Active Substance: CEFOTAXIME SODIUM
     Indication: PROPHYLAXIS
     Dosage: SAP 6 GRAM/ FIVE
     Route: 040
     Dates: start: 20200324

REACTIONS (3)
  - Acute respiratory distress syndrome [Fatal]
  - Hypoxia [Fatal]
  - Cell death [Unknown]

NARRATIVE: CASE EVENT DATE: 20200327
